FAERS Safety Report 5284369-4 (Version None)
Quarter: 2007Q1

REPORT INFORMATION
  Report Type: 
  Country: None (occurrence: None)
  Receive Date: 20070327
  Receipt Date: 20070313
  Transmission Date: 20070707
  Serious: Yes (Other)
  Sender: FDA-Public Use
  Company Number: S07-CAN-01275-01

PATIENT
  Age: 73 Year
  Sex: Female

DRUGS (3)
  1. CELEXA [Suspect]
     Dosage: 40 MG QD; PO
     Route: 048
  2. XANAX [Suspect]
     Dosage: 0.25 MG QID; PO
     Route: 048
  3. GLUCOSAMINE WITH CHONDROITIN [Concomitant]

REACTIONS (4)
  - BALANCE DISORDER [None]
  - DIZZINESS [None]
  - DYSPNOEA [None]
  - HYPOTENSION [None]
